FAERS Safety Report 5126687-6 (Version None)
Quarter: 2006Q4

REPORT INFORMATION
  Report Type: 
  Country: None (occurrence: None)
  Receive Date: 20061013
  Receipt Date: 20060929
  Transmission Date: 20070319
  Serious: Yes (Hospitalization)
  Sender: FDA-Public Use
  Company Number: PHRM2006FR02696

PATIENT
  Age: 92 Year
  Sex: Female

DRUGS (5)
  1. TAREG [Suspect]
     Route: 048
     Dates: end: 20060819
  2. DIGOXIN [Suspect]
     Dosage: 1 DF, QD
     Route: 048
     Dates: end: 20060819
  3. LASIX [Concomitant]
  4. DIFFU K [Concomitant]
     Route: 048
  5. LIPANOR [Concomitant]
     Route: 048

REACTIONS (6)
  - ASTHENIA [None]
  - BLOOD POTASSIUM INCREASED [None]
  - CARDIOACTIVE DRUG LEVEL INCREASED [None]
  - CREATININE RENAL CLEARANCE DECREASED [None]
  - RENAL FAILURE [None]
  - THERAPEUTIC AGENT TOXICITY [None]
